FAERS Safety Report 4895268-1 (Version None)
Quarter: 2006Q1

REPORT INFORMATION
  Report Type: 
  Country: None (occurrence: None)
  Receive Date: 20060130
  Receipt Date: 20060124
  Transmission Date: 20060701
  Serious: Yes (Life-Threatening, Hospitalization)
  Sender: FDA-Public Use
  Company Number: GB-GLAXOSMITHKLINE-B0407734A

PATIENT
  Age: 72 Year
  Sex: Male

DRUGS (2)
  1. AUGMENTIN [Suspect]
     Indication: PROPHYLAXIS
     Dosage: 1.2G UNKNOWN
     Route: 042
     Dates: start: 20060116, end: 20060116
  2. THYROXINE [Concomitant]
     Indication: HYPOTHYROIDISM
     Route: 048

REACTIONS (3)
  - HYPOTENSION [None]
  - HYPOXIA [None]
  - TACHYCARDIA [None]
